FAERS Safety Report 4915689-8 (Version None)
Quarter: 2006Q1

REPORT INFORMATION
  Report Type: 
  Country: None (occurrence: None)
  Receive Date: 20060214
  Receipt Date: 20060131
  Transmission Date: 20060701
  Serious: Yes (Hospitalization)
  Sender: FDA-Public Use
  Company Number: 2006006531

PATIENT
  Age: 52 Year
  Sex: Male
  Weight: 92.9874 kg

DRUGS (7)
  1. ZANTAC [Suspect]
     Indication: DYSPEPSIA
     Dosage: 1 TABLET TWICE A DAY, ORAL
     Route: 048
     Dates: start: 20060105, end: 20060110
  2. DILANTIN [Suspect]
     Indication: CONVULSION
     Dosage: 300 MG TWICE PER DAY INCREASED TO 400 MG
     Dates: start: 20041101
  3. ASPIRIN [Concomitant]
  4. LISINOPRIL [Concomitant]
  5. SIMVASTATIN [Concomitant]
  6. FISH OIL (FISH OIL) [Concomitant]
  7. MULTIVITAMINS (ASCORBIC ACID, ERGOCALCIFEROL, FOLIC ACID, NICOTINAMIDE [Concomitant]

REACTIONS (3)
  - ANTICONVULSANT DRUG LEVEL BELOW THERAPEUTIC [None]
  - DRUG INTERACTION [None]
  - GRAND MAL CONVULSION [None]
